FAERS Safety Report 16248067 (Version 2)
Quarter: 2019Q2

REPORT INFORMATION
  Report Type: Spontaneous
  Country: DE (occurrence: DE)
  Receive Date: 20190428
  Receipt Date: 20190428
  Transmission Date: 20190711
  Serious: Yes (Life-Threatening, Hospitalization, Other)
  Sender: FDA-Public Use
  Company Number: PHHY2019DE095430

PATIENT
  Age: 69 Year
  Sex: Female

DRUGS (33)
  1. CYCLOPHOSPHAMIDE. [Suspect]
     Active Substance: CYCLOPHOSPHAMIDE
     Dosage: 1500 MG, QD (1 IN 1 D)
     Route: 042
     Dates: start: 20160621
  2. TINZAPARIN [Concomitant]
     Active Substance: TINZAPARIN
     Indication: ATRIAL FIBRILLATION
     Dosage: 1 ML, QD  (1 IN 1 D)
     Route: 058
     Dates: start: 20160607
  3. PREDNISOLON [Suspect]
     Active Substance: PREDNISOLONE
     Dosage: 1 OT, 5QD (FOR 5 DAYS, 1 IN 1 D))
     Route: 048
     Dates: start: 20160607
  4. ACICLOVIR [Concomitant]
     Active Substance: ACYCLOVIR
     Indication: INFECTION PROPHYLAXIS
     Dosage: 400 MG, UNK  (FOR 3 DAYS)
     Route: 048
     Dates: start: 20160607
  5. RANITIDIN [Concomitant]
     Active Substance: RANITIDINE HYDROCHLORIDE
     Indication: PRODUCT USED FOR UNKNOWN INDICATION
     Dosage: 1 OT, QD (1 AMPULE (1 IN 1 D))
     Route: 042
     Dates: start: 20160606
  6. METOPROLOL. [Concomitant]
     Active Substance: METOPROLOL
     Indication: PRODUCT USED FOR UNKNOWN INDICATION
     Dosage: 200 MG, BID (2 IN 1 D)
     Route: 048
     Dates: start: 20160606
  7. DIGITOXINE [Concomitant]
     Indication: PRODUCT USED FOR UNKNOWN INDICATION
     Dosage: 1 MG, QD (1 IN 1 D)
     Route: 048
     Dates: start: 20160606
  8. PREDNISOLON [Suspect]
     Active Substance: PREDNISOLONE
     Indication: PRODUCT USED FOR UNKNOWN INDICATION
     Dosage: 100 MG, QD (1 IN 1 D)
     Route: 042
     Dates: start: 20160606, end: 20160606
  9. RITUXIMAB. [Suspect]
     Active Substance: RITUXIMAB
     Indication: B-CELL LYMPHOMA
     Dosage: 750 MG, QD (1 IN 1 D)
     Route: 042
     Dates: start: 20160606, end: 20160606
  10. SODIUM CHLORIDE. [Concomitant]
     Active Substance: SODIUM CHLORIDE
     Indication: PRODUCT USED FOR UNKNOWN INDICATION
     Dosage: 1000 ML, QD (1 IN 1 D)
     Route: 042
     Dates: start: 20160620
  11. FUROSEMIDE. [Concomitant]
     Active Substance: FUROSEMIDE
     Dosage: 1 OT, QD (FOR 2 DAYS (1 IN 1 D))
     Route: 042
     Dates: start: 20160607, end: 20160622
  12. PARACETAMOL [Concomitant]
     Active Substance: ACETAMINOPHEN
     Indication: PRODUCT USED FOR UNKNOWN INDICATION
     Dosage: 1 G, QD (1 IN 1 D)
     Route: 048
     Dates: start: 20160606
  13. KALIUM CHLORID [Concomitant]
     Active Substance: POTASSIUM CHLORIDE
     Indication: HYPOKALAEMIA
     Dosage: 1 OT, QD
     Route: 048
     Dates: start: 20160607, end: 20160608
  14. PREDNISOLON [Suspect]
     Active Substance: PREDNISOLONE
     Dosage: 100 MG, QD (1 IN 1 D)
     Route: 048
     Dates: start: 20160621
  15. DOXORUBICIN [Suspect]
     Active Substance: DOXORUBICIN
     Dosage: 100 MG, QD (1 IN 1 D)
     Route: 042
     Dates: start: 20160621
  16. RITUXIMAB. [Suspect]
     Active Substance: RITUXIMAB
     Dosage: 750 MG, QD (FOR 1 DAY 1 IN 1 D)
     Route: 042
     Dates: start: 20160620
  17. VINCRISTINE [Suspect]
     Active Substance: VINCRISTINE
     Indication: B-CELL LYMPHOMA
     Dosage: 1 OT, QD (FOR 1 DAY 1 IN 1 D)
     Route: 042
     Dates: start: 20160607, end: 20160607
  18. PEGFILGRASTIM [Suspect]
     Active Substance: PEGFILGRASTIM
     Indication: B-CELL LYMPHOMA
     Dosage: 6 MG, QD (1 IN 1D)
     Route: 058
     Dates: start: 20160527, end: 20160527
  19. PEGFILGRASTIM [Suspect]
     Active Substance: PEGFILGRASTIM
     Dosage: 6 MG, QD (FOR 1 DAY1 IN 1D)
     Route: 058
     Dates: start: 20160624
  20. DIMETINDENE MALEATE [Concomitant]
     Active Substance: DIMETHINDENE MALEATE
     Indication: PRODUCT USED FOR UNKNOWN INDICATION
     Dosage: 1 OT, QD (1 AMPULE (1 IN 1 D))
     Route: 042
     Dates: start: 20160606
  21. DOXORUBICIN [Suspect]
     Active Substance: DOXORUBICIN
     Indication: B-CELL LYMPHOMA
     Dosage: 1 OT, QD (FOR 1 DAY (1 IN 1 D))
     Route: 042
     Dates: start: 20160607, end: 20160607
  22. FUROSEMIDE. [Concomitant]
     Active Substance: FUROSEMIDE
     Dosage: 1 OT, QD FOR 1 DAY (1 IN 1 D))
     Route: 042
     Dates: start: 20160607
  23. SULFAMETHOXAZOLE AND TRIMETHOPRIM [Concomitant]
     Active Substance: SULFAMETHOXAZOLE\TRIMETHOPRIM
     Indication: INFECTION PROPHYLAXIS
     Dosage: 1920 MG, QW2  (2 TIMES/WK)
     Route: 048
     Dates: start: 20160606
  24. METOCLOPRAMIDE. [Concomitant]
     Active Substance: METOCLOPRAMIDE
     Indication: NAUSEA
     Dosage: 3 MG, QD (1 TO 3 MG QD)
     Route: 065
     Dates: start: 20160608
  25. ALLOPURINOL. [Concomitant]
     Active Substance: ALLOPURINOL
     Indication: PRODUCT USED FOR UNKNOWN INDICATION
     Dosage: 100 MG, QD (1 IN 1 D)
     Route: 048
     Dates: start: 20160607
  26. FUROSEMIDE. [Concomitant]
     Active Substance: FUROSEMIDE
     Indication: POLYURIA
     Dosage: 20 MG, QD (1 IN 1 D)
     Route: 042
     Dates: start: 20160607, end: 20160622
  27. BENZBROMARON [Concomitant]
     Indication: HYPERURICAEMIA
     Dosage: 100 MG, QD (1 IN 1 D)
     Route: 048
     Dates: start: 20160621
  28. RED BLOOD CELLS [Concomitant]
     Active Substance: HUMAN RED BLOOD CELL
     Indication: ANAEMIA
     Dosage: 1 OT, QD (2 PACKS (1 IN 1 D))
     Route: 058
     Dates: start: 20160608
  29. ONDANSETRON [Concomitant]
     Active Substance: ONDANSETRON
     Indication: PROPHYLAXIS OF NAUSEA AND VOMITING
     Dosage: 16 MG, BID (2 IN 1 D)
     Route: 060
     Dates: start: 20160607
  30. CYCLOPHOSPHAMIDE. [Suspect]
     Active Substance: CYCLOPHOSPHAMIDE
     Indication: B-CELL LYMPHOMA
     Dosage: 1 OT, QD (FOR 1 DAY (1 IN 1 D))
     Route: 042
     Dates: start: 20160607, end: 20160607
  31. VINCRISTINE [Suspect]
     Active Substance: VINCRISTINE
     Dosage: 2 MG, QD  (1 IN 1 D)
     Route: 042
     Dates: start: 20160621
  32. KALIUM CHLORID [Concomitant]
     Active Substance: POTASSIUM CHLORIDE
     Dosage: 1800 MG, QD (600 MILLIGRAM, TID)
     Route: 048
     Dates: start: 20160620
  33. LEVOTHYROXINE SODIUM. [Concomitant]
     Active Substance: LEVOTHYROXINE SODIUM
     Indication: HYPERTHYROIDISM
     Dosage: 100 UG, QD (L IN 1 D)
     Route: 048
     Dates: start: 20160606

REACTIONS (5)
  - Blood creatinine increased [Unknown]
  - C-reactive protein abnormal [Unknown]
  - Acute kidney injury [Recovered/Resolved]
  - Sepsis [Recovered/Resolved]
  - Arrhythmia [Unknown]

NARRATIVE: CASE EVENT DATE: 20160607
